FAERS Safety Report 4945280-9 (Version None)
Quarter: 2006Q1

REPORT INFORMATION
  Report Type: 
  Country: None (occurrence: None)
  Receive Date: 20060315
  Receipt Date: 20060315
  Transmission Date: 20060701
  Serious: Yes (Life-Threatening)
  Sender: FDA-Public Use
  Company Number: None

PATIENT
  Age: 8 Month
  Sex: Male
  Weight: 8.9 kg

DRUGS (2)
  1. TRASYLOL [Suspect]
     Indication: POST PROCEDURAL HAEMORRHAGE
     Dosage: LOADING 72MLS PUMP PRIMING DOSE 72MLS 15000000/150MLS 16.8 MLS/HR X 1 HOUR
     Dates: start: 20060223
  2. TRASYLOL [Suspect]
     Indication: PROPHYLAXIS
     Dosage: LOADING 72MLS PUMP PRIMING DOSE 72MLS 15000000/150MLS 16.8 MLS/HR X 1 HOUR
     Dates: start: 20060223

REACTIONS (1)
  - POSTOPERATIVE RENAL FAILURE [None]
